FAERS Safety Report 12965180 (Version 3)
Quarter: 2017Q1

REPORT INFORMATION
  Report Type: Spontaneous
  Country: DE (occurrence: DE)
  Receive Date: 20161122
  Receipt Date: 20170202
  Transmission Date: 20170428
  Serious: Yes (Death, Hospitalization)
  Sender: FDA-Public Use
  Company Number: DE-ALEXION PHARMACEUTICALS INC-A201608906

PATIENT
  Age: 69 Year
  Sex: Female

DRUGS (1)
  1. SOLIRIS [Suspect]
     Active Substance: ECULIZUMAB
     Indication: HAEMOLYTIC URAEMIC SYNDROME
     Dosage: UNK
     Route: 042

REACTIONS (3)
  - Accident [Fatal]
  - Fall [Unknown]
  - Thermal burn [Unknown]

NARRATIVE: CASE EVENT DATE: 20161129
